FAERS Safety Report 9687702 (Version 2)
Quarter: 2013Q4

REPORT INFORMATION
  Report Type: Spontaneous
  Country: US (occurrence: US)
  Receive Date: 20131114
  Receipt Date: 20131219
  Transmission Date: 20140711
  Serious: No
  Sender: FDA-Public Use
  Company Number: US-PFIZER INC-2013320395

PATIENT
  Age: 78 Year
  Sex: Male

DRUGS (18)
  1. REVATIO [Suspect]
     Indication: PULMONARY ARTERIAL HYPERTENSION
     Dosage: 20 MG, 3X/DAY
     Route: 048
     Dates: start: 20120314
  2. SPIRIVA [Concomitant]
     Indication: CHRONIC OBSTRUCTIVE PULMONARY DISEASE
     Dosage: 18 UG, 1X/DAY
     Route: 055
  3. SPIRONOLACTONE [Concomitant]
     Dosage: 25 MG, UNK (M, W, F, SUN)
  4. VITAMIN B12 [Concomitant]
     Indication: ANAEMIA
     Dosage: 500 UG, 1X/DAY
     Route: 060
  5. VITAMIN D3 [Concomitant]
     Indication: MINERAL SUPPLEMENTATION
     Dosage: 1000 IU, 1X/DAY
  6. ZOCOR [Concomitant]
     Indication: LIPIDS
     Dosage: 40 MG, 1X/DAY
  7. ALBUTEROL [Concomitant]
     Indication: CHRONIC OBSTRUCTIVE PULMONARY DISEASE
     Dosage: 2 PUFFS ONCE DAILY
     Route: 055
  8. ALLOPURINOL [Concomitant]
     Indication: GOUT
     Dosage: 100 MG, 1X/DAY
  9. ATENOLOL [Concomitant]
     Indication: BLOOD PRESSURE
     Dosage: 25 MG, 1X/DAY
  10. BECLOMETHASONE [Concomitant]
     Indication: CHRONIC OBSTRUCTIVE PULMONARY DISEASE
     Dosage: 80 UG, 2X/DAY
     Route: 055
  11. CARDIZEM [Concomitant]
     Indication: BLOOD PRESSURE
     Dosage: 240 MG, 1X/DAY
  12. CLARITIN [Concomitant]
     Indication: HYPERSENSITIVITY
     Dosage: 10 MG, 1X/DAY
  13. COLCHICINE [Concomitant]
     Indication: GOUT
     Dosage: 0.6 G, 1X/DAY (IF NEEDED)
  14. DIGOXIN [Concomitant]
     Dosage: 125 UG, UNK
  15. FUROSEMIDE [Concomitant]
     Dosage: 20 MG, UNK
  16. INDOMETHACIN [Concomitant]
     Dosage: 75 MG, 2X/DAY
  17. LEVOTHYROXINE [Concomitant]
     Dosage: 50 UG, 1X/DAY
  18. ASA [Concomitant]
     Dosage: 81 MG, 1X/DAY

REACTIONS (1)
  - Malaise [Unknown]
